FAERS Safety Report 12726332 (Version 1)
Quarter: 2016Q3

REPORT INFORMATION
  Report Type: Spontaneous
  Country: US (occurrence: US)
  Receive Date: 20160906
  Receipt Date: 20160906
  Transmission Date: 20161109
  Serious: Yes (Other)
  Sender: FDA-Public Use
  Company Number: None

PATIENT
  Age: 30 Year
  Sex: Female
  Weight: 145.28 kg

DRUGS (2)
  1. POSTNATAL VITAMIN [Concomitant]
  2. PARAGARD T 380A [Suspect]
     Active Substance: COPPER

REACTIONS (5)
  - Headache [None]
  - Vision blurred [None]
  - Drug ineffective [None]
  - Migraine [None]
  - Hypoaesthesia [None]

NARRATIVE: CASE EVENT DATE: 20160726
